FAERS Safety Report 7394399-4 (Version None)
Quarter: 2011Q2

REPORT INFORMATION
  Report Type: 
  Country: None (occurrence: None)
  Receive Date: 20110405
  Receipt Date: 20110322
  Transmission Date: 20111010
  Serious: Yes (Hospitalization, Other)
  Sender: FDA-Public Use
  Company Number: PHHY2011FR09001

PATIENT
  Age: 84 Year
  Sex: Female
  Weight: 46.7 kg

DRUGS (9)
  1. BISOPROLOL FUMARATE [Concomitant]
     Dosage: 25 MG, QD
     Dates: end: 20100501
  2. FUROSEMIDE [Concomitant]
     Indication: HYPERTENSION
     Dosage: 60 MG, UNK
     Dates: start: 20100501, end: 20100517
  3. PLAVIX [Concomitant]
     Indication: ISCHAEMIC CARDIOMYOPATHY
  4. ARANESP [Concomitant]
  5. HYPERIUM [Concomitant]
  6. RASILEZ [Suspect]
     Indication: HYPERTENSION
     Dosage: 150 MG, UNK
     Dates: start: 20100402, end: 20100517
  7. OXYBUTYNIN [Concomitant]
  8. LERCAN [Concomitant]
     Dosage: 10 MG, QD
  9. LOXEN [Suspect]
     Dosage: 50 MG, UNK

REACTIONS (9)
  - OEDEMA PERIPHERAL [None]
  - HYPERTENSION [None]
  - NEPHROPATHY [None]
  - HYPERKALAEMIA [None]
  - EPISTAXIS [None]
  - RENAL FAILURE ACUTE [None]
  - VENTRICULAR HYPERTROPHY [None]
  - RENAL ARTERY THROMBOSIS [None]
  - IRON DEFICIENCY ANAEMIA [None]
